FAERS Safety Report 10518743 (Version 1)
Quarter: 2014Q4

REPORT INFORMATION
  Report Type: Spontaneous
  Country: US (occurrence: None)
  Receive Date: 20141014
  Receipt Date: 20141014
  Transmission Date: 20150528
  Serious: Yes (Other)
  Sender: FDA-Public Use
  Company Number: None

PATIENT
  Age: 71 Year
  Sex: Female
  Weight: 69.85 kg

DRUGS (8)
  1. LOVASTATIN. [Concomitant]
     Active Substance: LOVASTATIN
  2. BENZONATATE. [Suspect]
     Active Substance: BENZONATATE
     Indication: NASOPHARYNGITIS
     Dosage: 100MG, TAKE 1 CAPSULE, 3 TIMES DAILY, AS NEEDED, 1 CAPSULE IN MORNING, 1 CAPSULE IN AT AFTERNOON, CAPSULE IN EVENING, BY MOUTH
     Route: 048
     Dates: start: 20140930, end: 20141004
  3. TOPROL XL [Concomitant]
     Active Substance: METOPROLOL SUCCINATE
  4. ECOTRIN [Concomitant]
     Active Substance: ASPIRIN
  5. DIAVON [Concomitant]
  6. MULTIVITAMIN [Concomitant]
     Active Substance: VITAMINS
  7. BENZONATATE. [Suspect]
     Active Substance: BENZONATATE
     Indication: COUGH
     Dosage: 100MG, TAKE 1 CAPSULE, 3 TIMES DAILY, AS NEEDED, 1 CAPSULE IN MORNING, 1 CAPSULE IN AT AFTERNOON, CAPSULE IN EVENING, BY MOUTH
     Route: 048
     Dates: start: 20140930, end: 20141004
  8. ACHIPHEA [Concomitant]

REACTIONS (3)
  - Pruritus [None]
  - Urticaria [None]
  - Peripheral swelling [None]

NARRATIVE: CASE EVENT DATE: 20141004
